FAERS Safety Report 5673014-1 (Version None)
Quarter: 2008Q1

REPORT INFORMATION
  Report Type: 
  Country: None (occurrence: None)
  Receive Date: 20080319
  Receipt Date: 20080314
  Transmission Date: 20080703
  Serious: Yes (Congenital Anomaly)
  Sender: FDA-Public Use
  Company Number: B0513199A

PATIENT
  Sex: Female

DRUGS (8)
  1. LAMICTAL [Suspect]
     Indication: DEPRESSION
     Dosage: 150MG PER DAY
     Dates: start: 20040101, end: 20070710
  2. SELO-ZOK [Suspect]
     Dosage: 50MG PER DAY
     Dates: start: 20071023
  3. ZOLOFT [Suspect]
     Indication: DEPRESSION
     Dates: start: 20070710
  4. SEROQUEL [Suspect]
     Indication: DEPRESSION
     Dosage: 700MG PER DAY
     Dates: start: 20070710
  5. EFFEXOR [Suspect]
     Indication: DEPRESSION
     Dosage: 300MG PER DAY
     Dates: start: 20070710
  6. CORDARONE [Concomitant]
  7. VITAMIN E [Concomitant]
     Indication: DRUG USE FOR UNKNOWN INDICATION
  8. BELLADONNA [Concomitant]
     Indication: DRUG USE FOR UNKNOWN INDICATION

REACTIONS (3)
  - CEREBRAL VENTRICLE DILATATION [None]
  - DRUG EXPOSURE DURING PREGNANCY [None]
  - GROWTH RETARDATION [None]
